FAERS Safety Report 17224725 (Version 1)
Quarter: 2020Q1

REPORT INFORMATION
  Report Type: Spontaneous
  Country: US (occurrence: US)
  Receive Date: 20200102
  Receipt Date: 20200102
  Transmission Date: 20200409
  Serious: Yes (Hospitalization)
  Sender: FDA-Public Use
  Company Number: US-MYLANLABS-2019M1132499

PATIENT
  Age: 46 Year
  Sex: Male

DRUGS (4)
  1. PREDNISONE. [Suspect]
     Active Substance: PREDNISONE
     Indication: PEMPHIGUS
     Dosage: 60 MILLIGRAM, QD
     Route: 048
  2. TRIAMCINOLONE [Suspect]
     Active Substance: TRIAMCINOLONE
     Indication: PEMPHIGUS
     Dosage: UNK
     Route: 061
  3. MUPIROCIN. [Concomitant]
     Active Substance: MUPIROCIN
     Indication: PEMPHIGUS
     Route: 065
  4. PREDNISONE. [Suspect]
     Active Substance: PREDNISONE
     Dosage: DOSE INCREASED AT SECOND CLINIC VISIT
     Route: 048

REACTIONS (2)
  - Condition aggravated [Recovered/Resolved]
  - Schizoaffective disorder [Recovered/Resolved]
